FAERS Safety Report 5352218-1 (Version None)
Quarter: 2007Q2

REPORT INFORMATION
  Report Type: 
  Country: None (occurrence: None)
  Receive Date: 20070521
  Receipt Date: 20070321
  Transmission Date: 20071010
  Serious: No
  Sender: FDA-Public Use
  Company Number: WAES 0703USA04143

PATIENT
  Age: 80 Year
  Sex: Male

DRUGS (8)
  1. JANUVIA [Suspect]
     Indication: DIABETES MELLITUS
     Dosage: 100 MG/DAILY/PO
     Route: 048
     Dates: start: 20070306
  2. ACEON [Concomitant]
  3. COUMADIN [Concomitant]
  4. LASIX [Concomitant]
  5. PREVACID [Concomitant]
  6. TOPROL-XL [Concomitant]
  7. ZAROXOLYN [Concomitant]
  8. FERROUS SULFATE [Concomitant]

REACTIONS (1)
  - COUGH [None]
